FAERS Safety Report 23658722 (Version 4)
Quarter: 2025Q3

REPORT INFORMATION
  Report Type: Spontaneous
  Country: EU (occurrence: EU)
  Receive Date: 20240321
  Receipt Date: 20250929
  Transmission Date: 20251021
  Serious: Yes (Hospitalization, Other)
  Sender: NOVARTIS
  Company Number: EU-SANDOZ-SDZ2023BE051826

PATIENT
  Age: 64 Year
  Sex: Male

DRUGS (41)
  1. ETANERCEPT [Suspect]
     Active Substance: ETANERCEPT
     Indication: Graft versus host disease
     Dosage: 25 MG, Q2W
     Route: 065
  2. AZITHROMYCIN [Suspect]
     Active Substance: AZITHROMYCIN
     Indication: Cryptosporidiosis infection
     Dosage: 500 MG, QD
     Route: 065
  3. BECLOMETHASONE DIPROPIONATE [Suspect]
     Active Substance: BECLOMETHASONE DIPROPIONATE
     Indication: Graft versus host disease
     Route: 065
  4. BECLOMETHASONE DIPROPIONATE [Suspect]
     Active Substance: BECLOMETHASONE DIPROPIONATE
     Indication: Prophylaxis against graft versus host disease
  5. EVEROLIMUS [Suspect]
     Active Substance: EVEROLIMUS
     Indication: Graft versus host disease
     Dosage: 0.5 MG, Q12H
     Route: 065
     Dates: start: 2020
  6. EVEROLIMUS [Suspect]
     Active Substance: EVEROLIMUS
     Indication: Colitis
     Dosage: 0.5 MG, QD (0.5 MILLIGRAM, QD (ONCE A DAY)
     Route: 065
     Dates: start: 2020
  7. MYCOPHENOLATE MOFETIL [Suspect]
     Active Substance: MYCOPHENOLATE MOFETIL
     Indication: Prophylaxis against graft versus host disease
     Route: 065
     Dates: start: 20200313, end: 20200417
  8. MYCOPHENOLATE MOFETIL [Suspect]
     Active Substance: MYCOPHENOLATE MOFETIL
     Indication: Allogenic stem cell transplantation
     Route: 065
     Dates: start: 2020
  9. MYCOPHENOLATE MOFETIL [Suspect]
     Active Substance: MYCOPHENOLATE MOFETIL
     Indication: Immunosuppressant drug therapy
  10. METHOTREXATE [Suspect]
     Active Substance: METHOTREXATE
     Indication: Immunosuppressant drug therapy
     Route: 065
  11. FLUDARABINE [Suspect]
     Active Substance: FLUDARABINE PHOSPHATE
     Indication: Bone marrow conditioning regimen
     Route: 065
  12. TACROLIMUS [Suspect]
     Active Substance: TACROLIMUS
     Indication: Allogenic stem cell transplantation
     Route: 065
     Dates: start: 20200313, end: 20201208
  13. TACROLIMUS [Suspect]
     Active Substance: TACROLIMUS
     Indication: Graft versus host disease
     Route: 065
     Dates: start: 20200313
  14. TACROLIMUS [Suspect]
     Active Substance: TACROLIMUS
     Indication: Immunosuppressant drug therapy
  15. TACROLIMUS [Suspect]
     Active Substance: TACROLIMUS
     Indication: Prophylaxis against graft versus host disease
  16. PAROMOMYCIN [Suspect]
     Active Substance: PAROMOMYCIN
     Indication: Cryptosporidiosis infection
     Dosage: 500 MILLIGRAM, QID (FOUR TIMES A DAY)
     Route: 065
  17. PAROMOMYCIN [Suspect]
     Active Substance: PAROMOMYCIN
     Route: 065
  18. NITAZOXANIDE [Suspect]
     Active Substance: NITAZOXANIDE
     Indication: Cryptosporidiosis infection
     Dosage: 2000 MG, QD (1000 MILLIGRAM, BID)
     Route: 065
  19. NITAZOXANIDE [Suspect]
     Active Substance: NITAZOXANIDE
     Indication: Diarrhoea
  20. THYMOGLOBULINE [Suspect]
     Active Substance: LAPINE T-LYMPHOCYTE IMMUNE GLOBULIN
     Indication: Graft versus host disease
     Route: 065
     Dates: start: 20200313, end: 20200604
  21. THYMOGLOBULINE [Suspect]
     Active Substance: LAPINE T-LYMPHOCYTE IMMUNE GLOBULIN
     Indication: Immunosuppressant drug therapy
     Route: 065
  22. THYMOGLOBULINE [Suspect]
     Active Substance: LAPINE T-LYMPHOCYTE IMMUNE GLOBULIN
     Indication: Graft versus host disease
     Route: 065
     Dates: start: 20200313
  23. THYMOGLOBULINE [Suspect]
     Active Substance: LAPINE T-LYMPHOCYTE IMMUNE GLOBULIN
     Indication: Prophylaxis against graft versus host disease
  24. METHYLPREDNISOLONE [Suspect]
     Active Substance: METHYLPREDNISOLONE
     Indication: Immunosuppressant drug therapy
     Dosage: 2 MG/KG, DAILY
     Route: 065
     Dates: start: 20200522, end: 20200604
  25. METHYLPREDNISOLONE [Suspect]
     Active Substance: METHYLPREDNISOLONE
     Indication: Prophylaxis against graft versus host disease
     Dosage: 4 MG, DAILY
     Route: 065
     Dates: start: 20200617, end: 20200808
  26. METHYLPREDNISOLONE [Suspect]
     Active Substance: METHYLPREDNISOLONE
     Indication: Acute graft versus host disease
     Dosage: 2 MG, DAILY
     Route: 065
     Dates: start: 20200808, end: 202009
  27. METHYLPREDNISOLONE [Suspect]
     Active Substance: METHYLPREDNISOLONE
     Route: 065
  28. METHYLPREDNISOLONE [Suspect]
     Active Substance: METHYLPREDNISOLONE
     Dosage: 2 MG/KG, QD
     Route: 065
     Dates: start: 2020
  29. BECLOMETHASONE [Suspect]
     Active Substance: BECLOMETHASONE
     Indication: Acute graft versus host disease
     Route: 065
     Dates: start: 2020
  30. BECLOMETHASONE [Suspect]
     Active Substance: BECLOMETHASONE
     Indication: Prophylaxis against graft versus host disease
     Route: 065
     Dates: start: 2020
  31. ALKERAN [Suspect]
     Active Substance: MELPHALAN
     Indication: Bone marrow conditioning regimen
     Route: 065
  32. ALKERAN [Suspect]
     Active Substance: MELPHALAN
     Indication: Immunosuppressant drug therapy
  33. METHYLPREDNISOLONE [Suspect]
     Active Substance: METHYLPREDNISOLONE
     Indication: Prophylaxis against graft versus host disease
     Route: 065
  34. METHYLPREDNISOLONE [Suspect]
     Active Substance: METHYLPREDNISOLONE
     Indication: Immunosuppressant drug therapy
  35. AFINITOR [Concomitant]
     Active Substance: EVEROLIMUS
     Indication: Immunosuppressant drug therapy
     Dosage: 0.5 MG, 2X/DAY
     Route: 065
     Dates: start: 20200705, end: 20201108
  36. AFINITOR [Concomitant]
     Active Substance: EVEROLIMUS
     Indication: Prophylaxis against graft versus host disease
  37. RIFAXIMIN [Concomitant]
     Active Substance: RIFAXIMIN
     Indication: Cryptosporidiosis infection
     Dosage: 550 MG, BID
     Route: 065
  38. VALACYCLOVIR HYDROCHLORIDE [Concomitant]
     Active Substance: VALACYCLOVIR HYDROCHLORIDE
     Indication: Cytomegalovirus infection reactivation
     Route: 065
  39. GANCICLOVIR SODIUM [Concomitant]
     Active Substance: GANCICLOVIR SODIUM
     Indication: Cytomegalovirus infection reactivation
     Route: 065
  40. ETANERCEPT [Concomitant]
     Active Substance: ETANERCEPT
     Indication: Acute graft versus host disease
     Dosage: 25 MG, TIW
     Route: 065
     Dates: start: 2020
  41. ETANERCEPT [Concomitant]
     Active Substance: ETANERCEPT
     Indication: Graft versus host disease
     Dosage: 50 MG, QW (25 MG, BIW (TWICE A WEEK))
     Route: 065

REACTIONS (6)
  - Colitis [Recovered/Resolved]
  - Cryptosporidiosis infection [Recovering/Resolving]
  - Disease recurrence [Recovered/Resolved]
  - Drug ineffective [Recovered/Resolved]
  - Drug ineffective for unapproved indication [Unknown]
  - Off label use [Unknown]

NARRATIVE: CASE EVENT DATE: 20200101
